FAERS Safety Report 9297864 (Version 3)
Quarter: 2013Q3

REPORT INFORMATION
  Report Type: Spontaneous
  Country: US (occurrence: US)
  Receive Date: 20130520
  Receipt Date: 20130815
  Transmission Date: 20140515
  Serious: Yes (Death, Other)
  Sender: FDA-Public Use
  Company Number: PHEH2013US010879

PATIENT
  Sex: Male

DRUGS (4)
  1. RECLAST [Suspect]
     Indication: OSTEOPOROSIS
     Dosage: UNK
     Route: 042
     Dates: start: 20100308
  2. RECLAST [Suspect]
     Dosage: UNK
     Route: 042
     Dates: start: 20120312
  3. RECLAST [Suspect]
     Dosage: UNK
     Route: 042
     Dates: start: 20130313
  4. ANTIHYPERTENSIVES [Concomitant]
     Dosage: UNK UKN, UNK

REACTIONS (4)
  - Myocardial infarction [Fatal]
  - Loss of consciousness [Unknown]
  - Cold sweat [Unknown]
  - Pallor [Unknown]
